FAERS Safety Report 18560898 (Version 1)
Quarter: 2020Q4

REPORT INFORMATION
  Report Type: Report from Study
  Country: US (occurrence: US)
  Receive Date: 20201130
  Receipt Date: 20201130
  Transmission Date: 20210114
  Serious: Yes (Death)
  Sender: FDA-Public Use
  Company Number: US-TAIHO ONCOLOGY  INC-EU-2020-04125

PATIENT
  Age: 70 Year
  Sex: Male
  Weight: 87.85 kg

DRUGS (2)
  1. LONSURF [Suspect]
     Active Substance: TIPIRACIL HYDROCHLORIDE\TRIFLURIDINE
     Dosage: CYCLE UNKNOWN?D2, D4, D9 AND D11
     Route: 048
     Dates: start: 20200612, end: 20201123
  2. LONSURF [Suspect]
     Active Substance: TIPIRACIL HYDROCHLORIDE\TRIFLURIDINE
     Indication: COLON CANCER
     Dosage: UNKNOWN CYCLE ?D1, D3, D5, D8, D10, D12
     Route: 048
     Dates: start: 20200612, end: 20201123

REACTIONS (1)
  - Death [Fatal]
